FAERS Safety Report 10030488 (Version 1)
Quarter: 2014Q1

REPORT INFORMATION
  Report Type: Spontaneous
  Country: US (occurrence: US)
  Receive Date: 20140323
  Receipt Date: 20140323
  Transmission Date: 20141002
  Serious: No
  Sender: FDA-Public Use
  Company Number: US-ALLERGAN-1402743US

PATIENT
  Age: 58 Year
  Sex: Female

DRUGS (3)
  1. LATISSE 0.03% [Suspect]
     Indication: GROWTH OF EYELASHES
     Dosage: UNK, NIGHTLY
     Dates: start: 2010
  2. LATISSE 0.03% [Suspect]
     Dosage: UNK, NIGHTLY
     Dates: start: 201312
  3. LATISSE 0.03% [Suspect]
     Dosage: UNK, EVERY OTHER OR EVERY THIRD NIGHT

REACTIONS (3)
  - Product packaging issue [Unknown]
  - Drug ineffective [Unknown]
  - Erythema of eyelid [Recovered/Resolved]
